FAERS Safety Report 21028639 (Version 1)
Quarter: 2022Q2

REPORT INFORMATION
  Report Type: Report from Study
  Country: BR (occurrence: BR)
  Receive Date: 20220630
  Receipt Date: 20220630
  Transmission Date: 20220721
  Serious: Yes (Hospitalization)
  Sender: FDA-Public Use
  Company Number: BR-JNJFOC-20220422519

PATIENT
  Age: 66 Year
  Sex: Female
  Weight: 74 kg

DRUGS (5)
  1. SIMPONI [Suspect]
     Active Substance: GOLIMUMAB
     Indication: Rheumatoid arthritis
     Route: 058
     Dates: start: 20211001
  2. SIMPONI [Suspect]
     Active Substance: GOLIMUMAB
     Dosage: PATIENT IS UNDER TREATMENT SINCE MAR-2021 (01-OCT-2021 AS PER DATABASE).
     Route: 058
  3. NIMESULIDE [Suspect]
     Active Substance: NIMESULIDE
     Indication: Pain
     Route: 065
  4. DIPYRONE [Suspect]
     Active Substance: DIPYRONE
     Indication: Pain
     Route: 065
  5. PREDNISONE [Concomitant]
     Active Substance: PREDNISONE

REACTIONS (10)
  - Pyrexia [Unknown]
  - Dyspnoea [Unknown]
  - Generalised oedema [Unknown]
  - Pain [Unknown]
  - Arthropathy [Unknown]
  - Renal pain [Unknown]
  - Product administration error [Unknown]
  - Injection site pain [Recovering/Resolving]
  - Cartilage injury [Unknown]
  - Drug ineffective [Unknown]

NARRATIVE: CASE EVENT DATE: 20220101
